FAERS Safety Report 7775217-9 (Version None)
Quarter: 2011Q3

REPORT INFORMATION
  Report Type: 
  Country: None (occurrence: None)
  Receive Date: 20110923
  Receipt Date: 20110915
  Transmission Date: 20111222
  Serious: Yes (Hospitalization, Other)
  Sender: FDA-Public Use
  Company Number: US-MERCK-1103USA03935

PATIENT
  Age: 69 Year
  Sex: Female
  Weight: 70 kg

DRUGS (7)
  1. FOSAMAX [Suspect]
     Route: 048
     Dates: start: 20010101, end: 20100201
  2. VITAMINS (UNSPECIFIED) [Concomitant]
     Route: 065
  3. FOSAMAX [Suspect]
     Route: 048
     Dates: start: 20080201, end: 20100201
  4. FOSAMAX [Suspect]
     Indication: OSTEOPOROSIS
     Route: 048
     Dates: start: 20001101, end: 20010101
  5. FOSAMAX [Suspect]
     Indication: OSTEOPENIA
     Route: 048
     Dates: start: 20001101, end: 20010101
  6. CALCIUM (UNSPECIFIED) [Concomitant]
     Route: 065
  7. FOSAMAX [Suspect]
     Route: 048
     Dates: start: 20010101, end: 20100201

REACTIONS (15)
  - FEMUR FRACTURE [None]
  - PERSONALITY CHANGE [None]
  - MEMORY IMPAIRMENT [None]
  - FALL [None]
  - CALCIUM DEFICIENCY [None]
  - WEIGHT DECREASED [None]
  - CATARACT [None]
  - DEMENTIA [None]
  - BURSITIS [None]
  - CARPAL TUNNEL SYNDROME [None]
  - DIVERTICULUM INTESTINAL [None]
  - SPINAL COMPRESSION FRACTURE [None]
  - SCIATICA [None]
  - DERMAL CYST [None]
  - DEPRESSION [None]
